FAERS Safety Report 21416846 (Version 1)
Quarter: 2022Q4

REPORT INFORMATION
  Report Type: Spontaneous
  Country: US (occurrence: US)
  Receive Date: 20221006
  Receipt Date: 20221006
  Transmission Date: 20230112
  Serious: No
  Sender: FDA-Public Use
  Company Number: US-ALLERGAN-2230186US

PATIENT
  Sex: Female

DRUGS (5)
  1. VRAYLAR [Suspect]
     Active Substance: CARIPRAZINE
     Indication: Delusion
     Dosage: 1.5 MG, QD
     Route: 048
     Dates: start: 202207
  2. VRAYLAR [Suspect]
     Active Substance: CARIPRAZINE
     Indication: Depression
     Dosage: 1.5 MG, QD
     Route: 048
     Dates: start: 202111, end: 202207
  3. VRAYLAR [Suspect]
     Active Substance: CARIPRAZINE
     Indication: Anxiety
  4. VRAYLAR [Suspect]
     Active Substance: CARIPRAZINE
     Indication: Borderline personality disorder
  5. VRAYLAR [Suspect]
     Active Substance: CARIPRAZINE
     Indication: Post-traumatic stress disorder

REACTIONS (4)
  - Amnesia [Recovering/Resolving]
  - Aphasia [Recovering/Resolving]
  - Off label use [Unknown]
  - Tremor [Unknown]
